FAERS Safety Report 6433453-8 (Version None)
Quarter: 2009Q4

REPORT INFORMATION
  Report Type: 
  Country: None (occurrence: None)
  Receive Date: 20091106
  Receipt Date: 20091106
  Transmission Date: 20100525
  Serious: Yes (Life-Threatening)
  Sender: FDA-Public Use
  Company Number: None

PATIENT
  Sex: Male
  Weight: 143.7903 kg

DRUGS (1)
  1. CLONIDINE [Suspect]
     Dosage: .3MG/DAY 2 PATCHES PER WEEK EPIDURAL
     Route: 008
     Dates: start: 20091015, end: 20091105

REACTIONS (1)
  - DEVICE MALFUNCTION [None]
